FAERS Safety Report 6436258-7 (Version None)
Quarter: 2009Q4

REPORT INFORMATION
  Report Type: 
  Country: None (occurrence: None)
  Receive Date: 20091111
  Receipt Date: 20091103
  Transmission Date: 20100525
  Serious: Yes (Other)
  Sender: FDA-Public Use
  Company Number: A0799292A

PATIENT
  Age: 9 Year
  Sex: Male
  Weight: 18.2 kg

DRUGS (1)
  1. ADVAIR DISKUS 100/50 [Suspect]
     Indication: DRUG USE FOR UNKNOWN INDICATION
     Route: 055
     Dates: start: 20090201

REACTIONS (2)
  - INTRACRANIAL PRESSURE INCREASED [None]
  - OEDEMA [None]
